FAERS Safety Report 17299431 (Version 1)
Quarter: 2020Q1

REPORT INFORMATION
  Report Type: Spontaneous
  Country: US (occurrence: US)
  Receive Date: 20200122
  Receipt Date: 20200122
  Transmission Date: 20200409
  Serious: No
  Sender: FDA-Public Use
  Company Number: US-ALLERGAN-1910666US

PATIENT
  Sex: Female
  Weight: 70 kg

DRUGS (1)
  1. RESTASIS [Suspect]
     Active Substance: CYCLOSPORINE
     Indication: LACRIMATION INCREASED
     Dosage: UNK
     Route: 047

REACTIONS (1)
  - Drug ineffective [Unknown]
